FAERS Safety Report 20762926 (Version 18)
Quarter: 2022Q3

REPORT INFORMATION
  Report Type: Spontaneous
  Country: SK (occurrence: SK)
  Receive Date: 20220428
  Receipt Date: 20220912
  Transmission Date: 20221027
  Serious: Yes (Death, Other)
  Sender: FDA-Public Use
  Company Number: GB-GSKCCFEMEA-Case01140699AE40315

PATIENT
  Sex: Female

DRUGS (59)
  1. CIPROFLOXACIN HYDROCHLORIDE [Suspect]
     Active Substance: CIPROFLOXACIN HYDROCHLORIDE
     Indication: Product used for unknown indication
     Dosage: UNK
     Route: 065
  2. CIPROFLOXACIN HYDROCHLORIDE [Suspect]
     Active Substance: CIPROFLOXACIN HYDROCHLORIDE
     Indication: Product used for unknown indication
     Dosage: UNK
     Route: 065
  3. SALMETEROL [Suspect]
     Active Substance: SALMETEROL
     Indication: Product used for unknown indication
     Dosage: 100 UG (DISKUS DRY POWDER INHALER DEVICE)
     Route: 055
  4. SALMETEROL [Suspect]
     Active Substance: SALMETEROL
     Dosage: 25 UG
     Route: 065
  5. SALMETEROL [Suspect]
     Active Substance: SALMETEROL
     Dosage: UNK
     Route: 065
  6. SALMETEROL [Suspect]
     Active Substance: SALMETEROL
     Dosage: 100 UG, UNK;
     Route: 065
  7. SALMETEROL [Suspect]
     Active Substance: SALMETEROL
     Dosage: UNK (DISKUS DRY POWDER INHALER DEVICE ); ;
     Route: 065
  8. SALMETEROL [Suspect]
     Active Substance: SALMETEROL
     Dosage: 2 DF (2 PUFFS) (AEROSOL INHALATION) [2 PUFF(S), 25 MCG (DRY POWDER INHALER DEVICE INHALER)2 PUFF(S),
     Route: 065
  9. SALMETEROL [Suspect]
     Active Substance: SALMETEROL
     Dosage: UNK (DISKUS DRY POWDER INHALER DEVICE ); ;
     Route: 065
  10. SALMETEROL [Suspect]
     Active Substance: SALMETEROL
     Dosage: 25 UG,POWDER AND SOLVENT FOR ENDOSINUSIAL SOLUTION25 UG, UNK; 25 MICROGRAM (2 PUFF(S)); 25 UG, POWDE
     Route: 065
  11. SALMETEROL [Suspect]
     Active Substance: SALMETEROL
     Dosage: 110 UG
  12. SALMETEROL [Suspect]
     Active Substance: SALMETEROL
     Dosage: 110 UG
     Route: 065
  13. ALBUTEROL [Suspect]
     Active Substance: ALBUTEROL
     Indication: Product used for unknown indication
     Dosage: 10 UG
     Route: 055
  14. ALBUTEROL [Suspect]
     Active Substance: ALBUTEROL
     Dosage: 100 UG, UNK (100 UG, UNK; CFC -FREE INHALER)
     Route: 055
  15. ALBUTEROL [Suspect]
     Active Substance: ALBUTEROL
     Dosage: UNK
     Route: 055
  16. ALBUTEROL [Suspect]
     Active Substance: ALBUTEROL
     Dosage: UNK
     Route: 065
  17. ALBUTEROL [Suspect]
     Active Substance: ALBUTEROL
     Dosage: 110 UG
     Route: 055
  18. ALBUTEROL [Suspect]
     Active Substance: ALBUTEROL
     Dosage: 2 DOSAGE FORM
     Route: 055
  19. ALBUTEROL [Suspect]
     Active Substance: ALBUTEROL
     Dosage: 25 UG (POWDER AND SOLVENT FOR ENDOSINUSIAL SOLUTION)
     Route: 055
  20. ALBUTEROL [Suspect]
     Active Substance: ALBUTEROL
     Dosage: 100 UG (110 UG)
     Route: 055
  21. ALBUTEROL [Suspect]
     Active Substance: ALBUTEROL
     Indication: Product used for unknown indication
     Dosage: 100 UG
     Route: 065
  22. ALBUTEROL [Suspect]
     Active Substance: ALBUTEROL
     Dosage: UNK
     Route: 065
  23. ALBUTEROL [Suspect]
     Active Substance: ALBUTEROL
     Dosage: 2 DF (2 PUFFS)(AEROSOL INHALATION)2 PUFF(S) 25 MCG(DRY POWDER INHALER DEVICE INHAL...
     Route: 065
  24. ALBUTEROL [Suspect]
     Active Substance: ALBUTEROL
     Dosage: 25 MICROGRAMS AEROSOL INHALATION (CFC FREE) 2 PUFF(S)
     Route: 065
  25. ALBUTEROL [Suspect]
     Active Substance: ALBUTEROL
     Dosage: 110 UG
     Route: 065
  26. ALBUTEROL [Suspect]
     Active Substance: ALBUTEROL
     Dosage: 25 UG
  27. ALBUTEROL [Suspect]
     Active Substance: ALBUTEROL
     Dosage: 100 UG, CFC- FREE INHALER 100 MICROGRAMS
     Route: 065
  28. ALBUTEROL [Suspect]
     Active Substance: ALBUTEROL
     Dosage: 110 UG
     Route: 065
  29. ONDANSETRON [Suspect]
     Active Substance: ONDANSETRON
     Indication: Product used for unknown indication
     Dosage: UNKNOWN
     Route: 065
  30. ONDANSETRON [Suspect]
     Active Substance: ONDANSETRON
     Dosage: UNK PRN
     Route: 065
  31. SEREVENT DISKUS [Suspect]
     Active Substance: SALMETEROL XINAFOATE
     Indication: Product used for unknown indication
     Dosage: 2 DF (2 PUFFS) (AEROSOL INHALATION) [2 PUFF(S), 25 MCG (DRYPOWDER INHALER DEVICE INHALER)
  32. SEREVENT DISKUS [Suspect]
     Active Substance: SALMETEROL XINAFOATE
     Dosage: 25 UG (POWDER AND SOLVENT FOR ENDOSINUSIAL SOLUTION)
  33. SEREVENT DISKUS [Suspect]
     Active Substance: SALMETEROL XINAFOATE
     Dosage: 25 UG (SALMETEROL XINAFOATE DISKUS DRY POWDER) (2 PUFF)
     Route: 065
  34. SEREVENT DISKUS [Suspect]
     Active Substance: SALMETEROL XINAFOATE
     Dosage: 100 UG
  35. SEREVENT DISKUS [Suspect]
     Active Substance: SALMETEROL XINAFOATE
     Dosage: 2 DF, (25 MCG (DRY POWDER INHALER DEVICE INHALER)
  36. SEREVENT DISKUS [Suspect]
     Active Substance: SALMETEROL XINAFOATE
     Dosage: 100 MG
  37. SEREVENT DISKUS [Suspect]
     Active Substance: SALMETEROL XINAFOATE
     Dosage: 25 UG (2 PUFF)
  38. SEREVENT DISKUS [Suspect]
     Active Substance: SALMETEROL XINAFOATE
     Dosage: 2 PUFFS
     Route: 065
  39. SEREVENT DISKUS [Suspect]
     Active Substance: SALMETEROL XINAFOATE
     Dosage: 110 UG
  40. SEREVENT DISKUS [Suspect]
     Active Substance: SALMETEROL XINAFOATE
     Dosage: 110 MG
     Route: 065
  41. ALBUTEROL SULFATE [Suspect]
     Active Substance: ALBUTEROL SULFATE
     Indication: Product used for unknown indication
     Dosage: 25MG, POWDER AND SOLVENT FOR ENDOSINUSIAL SOLUTION
  42. ALBUTEROL SULFATE [Suspect]
     Active Substance: ALBUTEROL SULFATE
     Dosage: 2 DF (2 PUFFS) (AEROSOL INHALATION) [2 PUFF(S), 25 MCG (DRY POWDER INHALER DEVICE INHALER)
  43. ALBUTEROL SULFATE [Suspect]
     Active Substance: ALBUTEROL SULFATE
     Dosage: 100 UG
     Route: 065
  44. ALBUTEROL SULFATE [Suspect]
     Active Substance: ALBUTEROL SULFATE
     Dosage: 100 UG
  45. ALBUTEROL SULFATE [Suspect]
     Active Substance: ALBUTEROL SULFATE
     Dosage: UNK
     Route: 065
  46. ALBUTEROL SULFATE [Suspect]
     Active Substance: ALBUTEROL SULFATE
     Dosage: UNK
  47. ALBUTEROL SULFATE [Suspect]
     Active Substance: ALBUTEROL SULFATE
     Dosage: 110 UG
  48. ENOXAPARIN [Suspect]
     Active Substance: ENOXAPARIN
     Indication: Product used for unknown indication
     Dosage: UNK
     Route: 065
  49. CIPROFLOXACIN LACTATE [Suspect]
     Active Substance: CIPROFLOXACIN LACTATE
     Indication: Product used for unknown indication
     Dosage: 2 DOSAGE FORM (FORMULATION: INTRAVENOUS INFUSION)
  50. CIPROFLOXACIN LACTATE [Suspect]
     Active Substance: CIPROFLOXACIN LACTATE
     Dosage: 2 DOSAGE FORM (2 PUFFS) (AEROSOL INHALATION) 25 MCG
  51. CIPROFLOXACIN LACTATE [Suspect]
     Active Substance: CIPROFLOXACIN LACTATE
     Dosage: UNK
     Route: 065
  52. CIPROFLOXACIN LACTATE [Suspect]
     Active Substance: CIPROFLOXACIN LACTATE
     Dosage: UNK
     Route: 065
  53. CIPROFLOXACIN LACTATE [Suspect]
     Active Substance: CIPROFLOXACIN LACTATE
     Dosage: 2 DOSAGE FORM
  54. CIPROFLOXACIN [Suspect]
     Active Substance: CIPROFLOXACIN
     Indication: Product used for unknown indication
     Dosage: UNK
     Route: 065
  55. CIPROFLOXACIN [Suspect]
     Active Substance: CIPROFLOXACIN
     Indication: Product used for unknown indication
     Dosage: UNK
     Route: 065
  56. CIPROFLOXACIN [Suspect]
     Active Substance: CIPROFLOXACIN
     Indication: Product used for unknown indication
     Dosage: UNK
  57. CIPROFLOXACIN [Suspect]
     Active Substance: CIPROFLOXACIN
     Indication: Product used for unknown indication
     Dosage: 2 DOSAGE FORM
     Route: 065
  58. CIPROFLOXACIN [Suspect]
     Active Substance: CIPROFLOXACIN
     Dosage: UNK,  (GENERIC: CIPROFLOXACIN ACETATE, FORMULATION: INHALATION POWDER)
     Route: 065
  59. CIPROFLOXACIN [Suspect]
     Active Substance: CIPROFLOXACIN
     Indication: Product used for unknown indication
     Dosage: UNK, (MODIFIED RELEASE TABLET)
     Route: 065

REACTIONS (3)
  - Death [Fatal]
  - Dysphonia [Fatal]
  - Dysphonia [Fatal]
